FAERS Safety Report 8917789 (Version 1)
Quarter: 2012Q4

REPORT INFORMATION
  Report Type: 
  Country: US (occurrence: US)
  Receive Date: 20121120
  Receipt Date: 20121120
  Transmission Date: 20130627
  Serious: No
  Sender: FDA-Public Use
  Company Number: US-009507513-1211USA006602

PATIENT
  Age: 78 Year
  Sex: Male

DRUGS (3)
  1. JANUVIA [Suspect]
     Indication: DIABETES MELLITUS
     Dosage: 50mg/once in the morning
     Route: 048
     Dates: start: 20121109
  2. LOTREL [Concomitant]
  3. ATENOLOL [Concomitant]

REACTIONS (2)
  - Blood glucose increased [Recovering/Resolving]
  - Abdominal pain upper [Recovered/Resolved]
